FAERS Safety Report 9695414 (Version 1)
Quarter: 2013Q4

REPORT INFORMATION
  Report Type: Spontaneous
  Country: US (occurrence: None)
  Receive Date: 20131118
  Receipt Date: 20131118
  Transmission Date: 20140711
  Serious: Yes (Other)
  Sender: FDA-Public Use
  Company Number: None

PATIENT
  Age: 52 Year
  Sex: Female
  Weight: 77.8 kg

DRUGS (8)
  1. GANETESPIB [Suspect]
     Indication: BREAST CANCER METASTATIC
     Dosage: Q28D
     Route: 042
     Dates: start: 20130513, end: 20131105
  2. FULVESTRANT [Suspect]
     Dosage: Q 28 DAYS
     Route: 030
     Dates: start: 20130513, end: 20131029
  3. LEXAPRO [Concomitant]
  4. IMODIUM [Concomitant]
  5. ANUSOL HC CREAM [Concomitant]
  6. NITROGLYCERINE COMPOUND [Concomitant]
  7. PRILOSEC [Concomitant]
  8. GABAPENTIN [Concomitant]

REACTIONS (8)
  - Proctalgia [None]
  - Condition aggravated [None]
  - Haemorrhage [None]
  - No therapeutic response [None]
  - Haemorrhoids [None]
  - Anal fissure [None]
  - Diarrhoea [None]
  - Constipation [None]
